FAERS Safety Report 7049120-6 (Version None)
Quarter: 2010Q4

REPORT INFORMATION
  Report Type: 
  Country: None (occurrence: None)
  Receive Date: 20101018
  Receipt Date: 20101006
  Transmission Date: 20110411
  Serious: Yes (Other)
  Sender: FDA-Public Use
  Company Number: DZ-NOVOPROD-316216

PATIENT
  Age: 67 Year
  Sex: Male
  Weight: 66 kg

DRUGS (4)
  1. NOVOMIX 30 FLEXPEN [Suspect]
     Indication: TYPE 2 DIABETES MELLITUS
     Dosage: 18+22+18 IU
     Dates: start: 20090315
  2. XATRAL                             /00975301/ [Concomitant]
  3. CLENIL                             /00212602/ [Concomitant]
  4. FORADIL                            /00958001/ [Concomitant]

REACTIONS (4)
  - BLOOD GLUCOSE ABNORMAL [None]
  - HYPERSENSITIVITY [None]
  - INJECTION SITE NODULE [None]
  - INJECTION SITE PAIN [None]
